FAERS Safety Report 6203347-1 (Version None)
Quarter: 2009Q2

REPORT INFORMATION
  Report Type: 
  Country: None (occurrence: None)
  Receive Date: 20090521
  Receipt Date: 20090508
  Transmission Date: 20091009
  Serious: Yes (Hospitalization, Other)
  Sender: FDA-Public Use
  Company Number: 2009AL002907

PATIENT
  Age: 32 Year
  Sex: Male
  Weight: 45 kg

DRUGS (9)
  1. FEVERALL [Suspect]
     Indication: PAIN
     Dosage: 1 GM;QD;PO
     Route: 048
  2. SERTRALINE HYDROCHLORIDE [Suspect]
     Indication: DEPRESSION
     Dosage: 50 MG;QD;PO
     Route: 048
  3. TRAMADOL HYDROCHLORIDE [Suspect]
     Dosage: 50 MG;Q8H;PO
     Route: 048
  4. SULFADIAZINE [Concomitant]
  5. RIFAMPICIN [Concomitant]
  6. CIPROFLOXACIN [Concomitant]
  7. PANTOPRAZOLE SODIUM [Concomitant]
  8. ENOXAPARIN SODIUM [Concomitant]
  9. OLANZAPINE [Concomitant]

REACTIONS (10)
  - DRUG INTERACTION [None]
  - ERYTHEMA [None]
  - GAMMA-GLUTAMYLTRANSFERASE INCREASED [None]
  - HEPATOTOXICITY [None]
  - HYPERCATABOLISM [None]
  - PAIN [None]
  - RASH [None]
  - SKIN EXFOLIATION [None]
  - SKIN TOXICITY [None]
  - SKIN ULCER [None]
